FAERS Safety Report 5345865-4 (Version None)
Quarter: 2007Q2

REPORT INFORMATION
  Report Type: 
  Country: None (occurrence: None)
  Receive Date: 20070430
  Receipt Date: 20070226
  Transmission Date: 20071010
  Serious: No
  Sender: FDA-Public Use
  Company Number: 261394

PATIENT
  Age: 53 Year
  Sex: Female

DRUGS (4)
  1. LEVEMIR [Suspect]
     Indication: INSULIN-REQUIRING TYPE II DIABETES MELLITUS
     Dosage: 68 IU, QD, SUBCUTANEOUS
     Route: 058
     Dates: start: 20060901
  2. LEVEMIR [Suspect]
     Dosage: 68 IU, QD, SUBCUTANEOUS
     Route: 058
  3. LIPITOR [Concomitant]
  4. GLUCOPHAGE /00082701/ (METFORMIN) [Concomitant]

REACTIONS (1)
  - INJECTION SITE ERYTHEMA [None]
